FAERS Safety Report 6398502-4 (Version None)
Quarter: 2009Q4

REPORT INFORMATION
  Report Type: 
  Country: None (occurrence: None)
  Receive Date: 20091013
  Receipt Date: 20091002
  Transmission Date: 20100525
  Serious: Yes (Other)
  Sender: FDA-Public Use
  Company Number: US-PFIZER INC-2009278072

PATIENT
  Sex: Female

DRUGS (1)
  1. ESTRING [Suspect]
     Indication: CYSTITIS

REACTIONS (2)
  - HYSTERECTOMY [None]
  - VAGINAL LESION [None]
